FAERS Safety Report 6358536-2 (Version None)
Quarter: 2009Q3

REPORT INFORMATION
  Report Type: 
  Country: None (occurrence: None)
  Receive Date: 20090817
  Receipt Date: 20090102
  Transmission Date: 20100115
  Serious: No
  Sender: FDA-Public Use
  Company Number: 20096051

PATIENT
  Age: 34 Year
  Sex: Female

DRUGS (1)
  1. LIORESAL [Suspect]
     Indication: MUSCLE SPASTICITY
     Dosage: MCG, DAILY, INTRATHECAL
     Route: 037

REACTIONS (3)
  - CONTUSION [None]
  - PAIN [None]
  - WEIGHT DECREASED [None]
